FAERS Safety Report 8933285 (Version 1)
Quarter: 2012Q4

REPORT INFORMATION
  Report Type: 
  Country: DE (occurrence: DE)
  Receive Date: 20121128
  Receipt Date: 20121128
  Transmission Date: 20130627
  Serious: Yes (Hospitalization, Other)
  Sender: FDA-Public Use
  Company Number: DE-PFIZER INC-2012297017

PATIENT
  Age: 79 Year
  Sex: Female

DRUGS (12)
  1. VENLAFAXINE HYDROCHLORIDE [Suspect]
     Dosage: 75 mg, per day
     Route: 048
     Dates: start: 20120619, end: 20120624
  2. VENLAFAXINE HYDROCHLORIDE [Suspect]
     Dosage: 150 mg, per day
     Route: 048
     Dates: start: 20120625, end: 20120705
  3. VENLAFAXINE HYDROCHLORIDE [Suspect]
     Dosage: 225 mg, per day
     Route: 048
     Dates: start: 20120706, end: 20120709
  4. VENLAFAXINE HYDROCHLORIDE [Suspect]
     Dosage: 75 mg, per day
     Route: 048
     Dates: start: 20120710, end: 20120711
  5. VENLAFAXINE HYDROCHLORIDE [Suspect]
     Dosage: 37.5 mg, per day
     Route: 048
     Dates: start: 20120712, end: 20120719
  6. VENLAFAXINE HYDROCHLORIDE [Suspect]
     Dosage: 150 mg, per day
     Route: 048
     Dates: start: 20120720, end: 20120723
  7. VENLAFAXINE HYDROCHLORIDE [Suspect]
     Dosage: 300 mg, per day
     Route: 048
     Dates: start: 20120724
  8. MIRTAZAPINE [Suspect]
     Dosage: 15 mg, per day
     Route: 048
     Dates: start: 20120515, end: 20120609
  9. MIRTAZAPINE [Suspect]
     Dosage: 30 mg, per day
     Route: 048
     Dates: start: 20120610, end: 20120618
  10. HCT HEXAL [Suspect]
     Dosage: 25 mg, per day, for quite some time
     Route: 048
     Dates: start: 20120727
  11. ASS [Concomitant]
     Dosage: 100 mg, per day, for quite some time
     Route: 048
  12. BISOPROLOL [Concomitant]
     Dosage: 2.5 mg, per day, for quite some time
     Route: 048

REACTIONS (5)
  - Hyponatraemia [Not Recovered/Not Resolved]
  - Depression [Unknown]
  - Delusional perception [Unknown]
  - Blood chloride decreased [Unknown]
  - Hypokalaemia [Unknown]
